FAERS Safety Report 4572049-X (Version None)
Quarter: 2005Q1

REPORT INFORMATION
  Report Type: 
  Country: None (occurrence: None)
  Receive Date: 20050202
  Receipt Date: 20050120
  Transmission Date: 20050727
  Serious: Yes (Other)
  Sender: FDA-Public Use
  Company Number: 2005016822

PATIENT
  Age: 63 Year
  Sex: Male
  Weight: 92.9874 kg

DRUGS (4)
  1. VIAGRA [Suspect]
     Indication: ERECTILE DYSFUNCTION
     Dosage: 100 MG, AS NEEDED, ORAL
     Route: 048
     Dates: start: 20020101
  2. BENAZEPRIL HYDROCHLORIDE (BENAZEPRAL HYDROCHLORIDE) [Concomitant]
  3. FLUVASTATIN (FLUVASTATIN) [Concomitant]
  4. HYDROCHLOROTHIAZIDE [Concomitant]

REACTIONS (1)
  - PROSTATE CANCER [None]
